FAERS Safety Report 7084372-8 (Version None)
Quarter: 2010Q4

REPORT INFORMATION
  Report Type: 
  Country: None (occurrence: None)
  Receive Date: 20101104
  Receipt Date: 20101025
  Transmission Date: 20110411
  Serious: Yes (Life-Threatening, Other)
  Sender: FDA-Public Use
  Company Number: JP-PFIZER INC-2010114429

PATIENT
  Age: 96 Year
  Sex: Female
  Weight: 56 kg

DRUGS (10)
  1. LYRICA [Suspect]
     Indication: POST HERPETIC NEURALGIA
     Dosage: 75 MG, 1X/DAY
     Route: 048
     Dates: start: 20100806, end: 20100807
  2. LYRICA [Suspect]
     Dosage: 75 MG, 2X/DAY
     Route: 048
     Dates: start: 20100807, end: 20100808
  3. RIZE [Concomitant]
     Indication: INSOMNIA
     Dosage: 5 MG, 1X/DAY
     Route: 048
     Dates: start: 20070219
  4. SEVEN EP [Concomitant]
     Indication: GASTRITIS
     Dosage: UNK
     Route: 048
     Dates: start: 20070219, end: 20100806
  5. VITANEURIN [Concomitant]
     Indication: POST HERPETIC NEURALGIA
     Dosage: 25 MG, 2X/DAY
     Route: 048
     Dates: start: 20070219, end: 20100806
  6. ADALAT CC [Concomitant]
     Indication: HYPERTENSION
     Dosage: 10 MG, 2X/DAY
     Route: 048
     Dates: start: 20080425
  7. LOSARTAN POTASSIUM AND HYDROCHLOROTHIAZIDE [Concomitant]
     Indication: HYPERTENSION
     Dosage: UNK
     Dates: start: 20080303
  8. YODEL S [Concomitant]
     Indication: CONSTIPATION
     Dosage: 80 MG, 1X/DAY
     Route: 048
     Dates: start: 20080619
  9. LOXONIN [Concomitant]
     Indication: POST HERPETIC NEURALGIA
     Dosage: 60 MG, 2X/DAY
     Route: 048
     Dates: start: 20070219, end: 20100806
  10. ALOSENN [Concomitant]
     Indication: CONSTIPATION
     Dosage: 1.5 G, 1X/DAY

REACTIONS (7)
  - BEDRIDDEN [None]
  - COORDINATION ABNORMAL [None]
  - DIPLOPIA [None]
  - DROOLING [None]
  - DYSARTHRIA [None]
  - OCULAR HYPERAEMIA [None]
  - SOMNOLENCE [None]
